FAERS Safety Report 17160872 (Version 2)
Quarter: 2020Q2

REPORT INFORMATION
  Report Type: Spontaneous
  Country: MX (occurrence: MX)
  Receive Date: 20191216
  Receipt Date: 20200415
  Transmission Date: 20200713
  Serious: Yes (Death, Other)
  Sender: FDA-Public Use
  Company Number: MX-BIOMARINAP-MX-2019-127498

PATIENT
  Age: 20 Year
  Sex: Female
  Weight: 20 kg

DRUGS (1)
  1. NAGLAZYME [Suspect]
     Active Substance: GALSULFASE
     Indication: MUCOPOLYSACCHARIDOSIS VI
     Dosage: 1 MILLIGRAM/KILOGRAM, QW
     Route: 042

REACTIONS (4)
  - Respiratory distress [Unknown]
  - Pyrexia [Unknown]
  - Respiratory tract infection [Unknown]
  - Respiratory disorder [Fatal]

NARRATIVE: CASE EVENT DATE: 20191212
